FAERS Safety Report 7427049-9 (Version None)
Quarter: 2011Q2

REPORT INFORMATION
  Report Type: 
  Country: None (occurrence: None)
  Receive Date: 20110420
  Receipt Date: 20081130
  Transmission Date: 20111010
  Serious: Yes (Death, Other)
  Sender: FDA-Public Use
  Company Number: US-BAYER-200840013NA

PATIENT
  Age: 54 Year
  Sex: Male

DRUGS (10)
  1. LANSOPRAZOLE [Concomitant]
  2. PROPRANOLOL [Concomitant]
  3. SPIRONOLACTONE [Concomitant]
  4. INSULIN [Concomitant]
  5. TRASYLOL [Suspect]
     Indication: MITRAL VALVE REPLACEMENT
  6. TRASYLOL [Suspect]
     Indication: AORTIC VALVE REPLACEMENT
     Dosage: UNK
     Route: 042
     Dates: start: 20000308
  7. VANCOMYCIN [Concomitant]
     Dosage: 500 MG DAILY
     Route: 042
  8. CEFTRIAXONE [Concomitant]
     Dosage: 1 GRAM EVERY 24 HRS.
     Route: 042
  9. GENTAMICIN [Concomitant]
     Dosage: UNK
     Dates: start: 20041110
  10. ANCEF [Concomitant]
     Dosage: UNK
     Dates: start: 20041110

REACTIONS (13)
  - UNEVALUABLE EVENT [None]
  - DEATH [None]
  - RENAL FAILURE [None]
  - FEAR [None]
  - INJURY [None]
  - STRESS [None]
  - ANHEDONIA [None]
  - EMOTIONAL DISTRESS [None]
  - RENAL IMPAIRMENT [None]
  - PAIN [None]
  - MULTI-ORGAN FAILURE [None]
  - RENAL INJURY [None]
  - ANXIETY [None]
